FAERS Safety Report 5010547-5 (Version None)
Quarter: 2006Q2

REPORT INFORMATION
  Report Type: 
  Country: None (occurrence: None)
  Receive Date: 20060523
  Receipt Date: 20060504
  Transmission Date: 20061013
  Serious: Yes (Hospitalization, Other)
  Sender: FDA-Public Use
  Company Number: ENTC2006-0132

PATIENT
  Age: 91 Year
  Sex: Female

DRUGS (4)
  1. STALEVO 150 [Suspect]
     Indication: PARKINSON'S DISEASE
     Dosage: 150 MG, 1 IN 1 D, ORAL
     Route: 048
     Dates: start: 20051201
  2. ARICEPT [Concomitant]
  3. OXYBUTYNIN [Concomitant]
  4. LEXAPRO [Concomitant]

REACTIONS (5)
  - DRUG PRESCRIBING ERROR [None]
  - HALLUCINATION, VISUAL [None]
  - LOSS OF CONSCIOUSNESS [None]
  - OBSESSIVE THOUGHTS [None]
  - WRONG TECHNIQUE IN DRUG USAGE PROCESS [None]
